FAERS Safety Report 6529227-X (Version None)
Quarter: 2010Q1

REPORT INFORMATION
  Report Type: 
  Country: None (occurrence: None)
  Receive Date: 20100107
  Receipt Date: 20091230
  Transmission Date: 20100710
  Serious: Yes (Other)
  Sender: FDA-Public Use
  Company Number: US-ROCHE-672513

PATIENT
  Sex: Female

DRUGS (2)
  1. CAPECITABINE [Suspect]
     Indication: BREAST CANCER
     Route: 065
     Dates: end: 20091105
  2. CAPECITABINE [Suspect]
     Route: 065
     Dates: start: 20091109

REACTIONS (1)
  - MALIGNANT NEOPLASM PROGRESSION [None]
